FAERS Safety Report 8273730-1 (Version None)
Quarter: 2012Q2

REPORT INFORMATION
  Report Type: 
  Country: None (occurrence: None)
  Receive Date: 20120409
  Receipt Date: 20120409
  Transmission Date: 20120825
  Serious: Yes (Hospitalization)
  Sender: FDA-Public Use
  Company Number: None

PATIENT
  Sex: Male
  Weight: 75.7 kg

DRUGS (6)
  1. DOXORUBICIN HCL [Suspect]
     Dosage: 72 MG
  2. PREDNISONE TAB [Suspect]
     Dosage: 735 MG
  3. RITUXIMAB (MOAB C2B8 ANTI CD20, CHIMERIC) [Suspect]
     Dosage: 660 MG
  4. VINCRISTINE SULFATE [Suspect]
     Dosage: 2.84 MG
  5. CYCLOPHOSPHAMIDE [Suspect]
     Dosage: 1313 MG
  6. ETOPOSIDE [Suspect]
     Dosage: 352 MG

REACTIONS (2)
  - SMALL INTESTINAL HAEMORRHAGE [None]
  - ANAEMIA [None]
